FAERS Safety Report 5155564-X (Version None)
Quarter: 2006Q4

REPORT INFORMATION
  Report Type: 
  Country: None (occurrence: None)
  Receive Date: 20061113
  Receipt Date: 20061025
  Transmission Date: 20070319
  Serious: Yes (Hospitalization)
  Sender: FDA-Public Use
  Company Number: 231774

PATIENT
  Age: 71 Year
  Sex: Female

DRUGS (2)
  1. AVASTIN [Suspect]
     Indication: COLORECTAL CANCER METASTATIC
     Dosage: UNK, Q2W, INTRAVENOUS
     Route: 042
     Dates: start: 20061024
  2. IRINOTECAN HCL [Concomitant]

REACTIONS (2)
  - CHILLS [None]
  - MALLORY-WEISS SYNDROME [None]
